FAERS Safety Report 4382546-8 (Version None)
Quarter: 2004Q2

REPORT INFORMATION
  Report Type: 
  Country: None (occurrence: None)
  Receive Date: 20040617
  Receipt Date: 20040602
  Transmission Date: 20050107
  Serious: Yes (Other)
  Sender: FDA-Public Use
  Company Number: 2004-00310FE

PATIENT
  Age: 59 Year
  Sex: Female

DRUGS (6)
  1. PENTASA [Suspect]
     Dosage: 3000 MG
     Dates: start: 20040426, end: 20040510
  2. BISOPROLOL [Concomitant]
  3. HYDROCHLOROTHIAZIDE [Concomitant]
  4. MOXONIDINE [Concomitant]
  5. ENALAPRIL MALEATE [Concomitant]
  6. ESOMEPRAZOLE [Concomitant]

REACTIONS (3)
  - DEHYDRATION [None]
  - DIARRHOEA [None]
  - RENAL FAILURE [None]
